FAERS Safety Report 6904985-0 (Version None)
Quarter: 2010Q3

REPORT INFORMATION
  Report Type: 
  Country: None (occurrence: None)
  Receive Date: 20100804
  Receipt Date: 20090819
  Transmission Date: 20110219
  Serious: No
  Sender: FDA-Public Use
  Company Number: US-PFIZER INC-2009229667

PATIENT
  Sex: Female
  Weight: 59.864 kg

DRUGS (1)
  1. LYRICA [Suspect]
     Indication: OCCIPITAL NEURALGIA
     Dosage: 50 MG, 2X/DAY
     Dates: start: 20090617

REACTIONS (3)
  - CONFUSIONAL STATE [None]
  - DISORIENTATION [None]
  - ERYTHEMA [None]
